FAERS Safety Report 5112487-X (Version None)
Quarter: 2006Q3

REPORT INFORMATION
  Report Type: 
  Country: None (occurrence: None)
  Receive Date: 20060922
  Receipt Date: 20060914
  Transmission Date: 20061208
  Serious: Yes (Other)
  Sender: FDA-Public Use
  Company Number: CA-BAYER-200614114GDS

PATIENT
  Age: 53 Year
  Sex: Male

DRUGS (1)
  1. CIPRO XL [Suspect]
     Indication: DRUG USE FOR UNKNOWN INDICATION
     Route: 048
     Dates: start: 20060721

REACTIONS (2)
  - EYE PAIN [None]
  - RETINAL ARTERY OCCLUSION [None]
